FAERS Safety Report 5669665-0 (Version None)
Quarter: 2008Q1

REPORT INFORMATION
  Report Type: 
  Country: None (occurrence: None)
  Receive Date: 20080317
  Receipt Date: 20080306
  Transmission Date: 20080703
  Serious: Yes (Death, Hospitalization)
  Sender: FDA-Public Use
  Company Number: DE-ROCHE-550479

PATIENT
  Age: 71 Year
  Sex: Male
  Weight: 64 kg

DRUGS (13)
  1. VALGANCICLOVIR HCL [Suspect]
     Dosage: GIVEN IN THE MORNING.
     Route: 048
     Dates: end: 20080303
  2. PROGRAF [Concomitant]
     Dates: start: 20071219, end: 20080303
  3. CELLCEPT [Concomitant]
     Dates: start: 20071219
  4. CELLCEPT [Concomitant]
     Dosage: DOSE REDUCTION.
     Dates: start: 20080229, end: 20080303
  5. EBRANTIL [Concomitant]
     Dates: start: 20071225, end: 20080303
  6. EUTHROID-1 [Concomitant]
     Dates: start: 20070101, end: 20080303
  7. DECORTIN [Concomitant]
     Dates: start: 20071219, end: 20080303
  8. UNSPECIFIED DRUG [Concomitant]
     Dosage: DRUG NAME REPORTED AS ZOPLICON.
     Dates: end: 20080303
  9. BELOC-ZOK [Concomitant]
     Dates: end: 20080303
  10. XANEF [Concomitant]
     Dates: end: 20080303
  11. ACTRAPID [Concomitant]
     Dates: end: 20080303
  12. PROTAPHANE [Concomitant]
     Dates: end: 20080303
  13. INSULINE [Concomitant]
     Dates: end: 20080303

REACTIONS (2)
  - DEATH [None]
  - DEHYDRATION [None]
